FAERS Safety Report 10210750 (Version 2)
Quarter: 2014Q2

REPORT INFORMATION
  Report Type: Report from Study
  Country: US (occurrence: US)
  Receive Date: 20140602
  Receipt Date: 20140611
  Transmission Date: 20141212
  Serious: Yes (Life-Threatening, Other)
  Sender: FDA-Public Use
  Company Number: PHEH2014US010592

PATIENT
  Sex: Female

DRUGS (17)
  1. TASIGNA [Suspect]
     Indication: CHRONIC MYELOID LEUKAEMIA
     Dosage: 300 MG, 2 PILLS IN THE MORNING AND 2 PILLS AT NIGHT
  2. TASIGNA [Suspect]
     Dosage: 150 MG, ONE PILL IN THE MORNING AND ONE AT NIGHT
  3. NOVOLOG [Suspect]
     Indication: BLOOD GLUCOSE ABNORMAL
  4. LOSARTAN/HCTZ GT [Concomitant]
     Indication: BLOOD PRESSURE
     Dosage: 1 DF, QD
  5. FELODIPINE EUROGENERICS [Concomitant]
     Indication: BLOOD PRESSURE
     Dosage: 1 DF, QD
  6. ALLOPURINOL [Concomitant]
     Indication: GOUT
     Dosage: 300 MG, UNK
  7. LIOTHYRONINE SODIUM [Concomitant]
     Indication: THYROID DISORDER
     Dosage: 25 UG, UNK
  8. ARMOUR THYROID [Concomitant]
     Indication: THYROID DISORDER
     Dosage: 30 MG, UNK
  9. CURCUMIN [Concomitant]
  10. MAGNESIUM [Concomitant]
  11. CALCIUM + VITAMIN D3 [Concomitant]
  12. IRON [Concomitant]
  13. ABTEI VITAMIN C [Concomitant]
  14. OMEGA 3 [Concomitant]
  15. CINNAMON [Concomitant]
  16. LANTUS [Concomitant]
  17. MULTIVITAMIN                       /00097801/ [Concomitant]

REACTIONS (6)
  - Peripheral swelling [Unknown]
  - Thyroid disorder [Recovered/Resolved]
  - Renal disorder [Recovered/Resolved]
  - Unevaluable event [Unknown]
  - Blood potassium increased [Recovered/Resolved]
  - Nasal congestion [Unknown]
